FAERS Safety Report 6707690-9 (Version None)
Quarter: 2010Q2

REPORT INFORMATION
  Report Type: 
  Country: None (occurrence: None)
  Receive Date: 20100503
  Receipt Date: 20090710
  Transmission Date: 20101027
  Serious: No
  Sender: FDA-Public Use
  Company Number: US-ASTRAZENECA-2009UW19390

PATIENT
  Age: 53 Year
  Sex: Female
  Weight: 48.1 kg

DRUGS (8)
  1. NEXIUM [Suspect]
     Route: 048
     Dates: start: 20090702
  2. ENZYMES [Concomitant]
  3. LICORICE TABLETS [Concomitant]
  4. MULTI GREENS [Concomitant]
  5. CALCIUM [Concomitant]
  6. MAGNESIUM [Concomitant]
  7. FISH OIL [Concomitant]
  8. PROBIOTICS [Concomitant]

REACTIONS (4)
  - DRUG INEFFECTIVE [None]
  - GASTROOESOPHAGEAL REFLUX DISEASE [None]
  - INCREASED UPPER AIRWAY SECRETION [None]
  - THROAT TIGHTNESS [None]
